FAERS Safety Report 25254118 (Version 1)
Quarter: 2025Q2

REPORT INFORMATION
  Report Type: Spontaneous
  Country: US (occurrence: US)
  Receive Date: 20250430
  Receipt Date: 20250430
  Transmission Date: 20250716
  Serious: No
  Sender: ABBVIE
  Company Number: US-ABBVIE-6256456

PATIENT
  Age: 19 Year
  Sex: Female
  Weight: 56 kg

DRUGS (2)
  1. RINVOQ [Suspect]
     Active Substance: UPADACITINIB
     Indication: Product used for unknown indication
     Route: 065
  2. DUPIXENT [Suspect]
     Active Substance: DUPILUMAB
     Indication: Dermatitis atopic
     Dosage: SOLUTION FOR INJECTION DELIVERED VIA SINGLE DOSE PRE FILLED PEN, FORM STRENGTH- 300 MG/2ML
     Route: 058

REACTIONS (5)
  - Oral mucosal eruption [Unknown]
  - Respiratory tract infection [Recovering/Resolving]
  - Rash [Unknown]
  - Eczema [Not Recovered/Not Resolved]
  - Therapeutic product effect incomplete [Unknown]

NARRATIVE: CASE EVENT DATE: 20240901
